FAERS Safety Report 21617421 (Version 1)
Quarter: 2022Q4

REPORT INFORMATION
  Report Type: Spontaneous
  Country: CN (occurrence: CN)
  Receive Date: 20221119
  Receipt Date: 20221119
  Transmission Date: 20230113
  Serious: Yes (Other)
  Sender: FDA-Public Use
  Company Number: None

PATIENT
  Age: 89 Year
  Sex: Male
  Weight: 66.5 kg

DRUGS (6)
  1. CYCLOPHOSPHAMIDE [Suspect]
     Active Substance: CYCLOPHOSPHAMIDE
     Indication: Diffuse large B-cell lymphoma
     Dosage: 0.15 G, QD, DILUTED WITH 40 ML OF 0.9 % SODIUM CHLORIDE, MICROPUMP
     Route: 040
     Dates: start: 20221026, end: 20221026
  2. SODIUM CHLORIDE [Suspect]
     Active Substance: SODIUM CHLORIDE
     Indication: Medication dilution
     Dosage: 40 ML, QD, USED TO DILUTE 0.15 G CYCLOPHOSPHAMIDE, MICROPUMP
     Route: 040
     Dates: start: 20221026, end: 20221026
  3. SODIUM CHLORIDE [Suspect]
     Active Substance: SODIUM CHLORIDE
     Dosage: 40 ML, QD, USED TO DILUTE 4 MG VINDESINE, MICROPUMP
     Route: 040
     Dates: start: 20221026, end: 20221026
  4. DEXTROSE MONOHYDRATE [Suspect]
     Active Substance: DEXTROSE MONOHYDRATE
     Indication: Medication dilution
     Dosage: 250 ML, QD, USED TO DILUTE 20 MG DOXORUBICIN LIPOSOME
     Route: 041
     Dates: start: 20221026, end: 20221026
  5. VINDESINE SULFATE [Suspect]
     Active Substance: VINDESINE SULFATE
     Indication: Diffuse large B-cell lymphoma
     Dosage: 4 MG, QD, DILUTED WITH 40 ML OF 0.9 % SODIUM CHLORIDE, MICROPUMP
     Route: 040
     Dates: start: 20221026, end: 20221026
  6. DOXORUBICIN HYDROCHLORIDE [Suspect]
     Active Substance: DOXORUBICIN HYDROCHLORIDE
     Indication: Diffuse large B-cell lymphoma
     Dosage: 20 MG, QD, DILUTED WITH 250 ML OF 5% GLUCOSE
     Route: 041
     Dates: start: 20221026, end: 20221026

REACTIONS (1)
  - Myelosuppression [Recovering/Resolving]

NARRATIVE: CASE EVENT DATE: 20221030
